FAERS Safety Report 5584698-0 (Version None)
Quarter: 2008Q1

REPORT INFORMATION
  Report Type: 
  Country: None (occurrence: None)
  Receive Date: 20080103
  Receipt Date: 20071220
  Transmission Date: 20080703
  Serious: Yes (Death, Other)
  Sender: FDA-Public Use
  Company Number: 2007-03140

PATIENT
  Age: 47 Year
  Sex: Male
  Weight: 58 kg

DRUGS (7)
  1. VELCADE [Suspect]
     Indication: MULTIPLE MYELOMA
     Dosage: 1.70 MG, INTRAVENOUS
     Route: 042
     Dates: start: 20070717, end: 20070803
  2. DEXAMETHASONE TAB [Concomitant]
  3. BAKTAR (SULFAMETHOXAZOLE, TRIMETHOPRIM) TABLET [Concomitant]
  4. LANSOPRAZOLE [Concomitant]
  5. GASMOTIN (MOSAPRIDE CITRATE) TABLET [Concomitant]
  6. PLATELETS [Concomitant]
  7. RED BLOOD CELLS [Concomitant]

REACTIONS (1)
  - TUMOUR LYSIS SYNDROME [None]
